FAERS Safety Report 6919748-X (Version None)
Quarter: 2010Q3

REPORT INFORMATION
  Report Type: 
  Country: None (occurrence: None)
  Receive Date: 20100811
  Receipt Date: 20100803
  Transmission Date: 20110219
  Serious: Yes (Hospitalization)
  Sender: FDA-Public Use
  Company Number: US-CEPHALON-2010003057

PATIENT
  Sex: Male

DRUGS (16)
  1. TREANDA [Suspect]
     Indication: B-CELL LYMPHOMA
     Route: 041
     Dates: start: 20100318, end: 20100415
  2. TREANDA [Suspect]
     Dosage: DOSE DECREASED
     Route: 041
     Dates: start: 20100527, end: 20100528
  3. RITUXAN [Suspect]
     Indication: B-CELL LYMPHOMA
     Route: 042
     Dates: start: 20100318, end: 20100527
  4. MULTI-VITAMINS [Concomitant]
  5. TESTOSTERONE DEPO [Concomitant]
     Indication: HYPOTHALAMO-PITUITARY DISORDER
  6. SYNTHROID [Concomitant]
     Indication: HYPOTHYROIDISM
  7. PRAVACHOL [Concomitant]
     Indication: BLOOD CHOLESTEROL INCREASED
  8. TRILIPIX [Concomitant]
     Indication: BLOOD CHOLESTEROL INCREASED
  9. TEKTURNA [Concomitant]
  10. EXFORGE [Concomitant]
     Dosage: 10-320 DAILY
  11. PRAVASTATIN [Concomitant]
  12. DICLOFENAC SODIUM [Concomitant]
  13. CARAFATE [Concomitant]
  14. ASPIRIN [Concomitant]
  15. MIRALAX [Concomitant]
     Indication: CONSTIPATION
  16. NEURONTIN [Concomitant]

REACTIONS (1)
  - GASTROENTERITIS [None]
